FAERS Safety Report 5746993-1 (Version None)
Quarter: 2008Q2

REPORT INFORMATION
  Report Type: 
  Country: None (occurrence: None)
  Receive Date: 20080522
  Receipt Date: 20080516
  Transmission Date: 20081010
  Serious: Yes (Other)
  Sender: FDA-Public Use
  Company Number: FR-PFIZER INC-2008042682

PATIENT
  Age: 52 Year
  Sex: Male

DRUGS (1)
  1. TAHOR [Suspect]

REACTIONS (1)
  - LYMPHOMA [None]
